FAERS Safety Report 5235809-8 (Version None)
Quarter: 2007Q1

REPORT INFORMATION
  Report Type: 
  Country: None (occurrence: None)
  Receive Date: 20070212
  Receipt Date: 20070131
  Transmission Date: 20070707
  Serious: Yes (Other)
  Sender: FDA-Public Use
  Company Number: 2006AP05194

PATIENT
  Age: 76 Year
  Sex: Female

DRUGS (5)
  1. ANAPEINE [Suspect]
     Indication: NERVE BLOCK
     Route: 065
     Dates: start: 20060630, end: 20060630
  2. CARBOCAIN [Suspect]
     Indication: NERVE BLOCK
     Route: 065
     Dates: start: 20060630, end: 20060630
  3. CARBOCAIN [Suspect]
     Route: 065
     Dates: start: 20060630, end: 20060630
  4. ANABOLIC STEROIDS AND PREPARATIONS [Concomitant]
     Route: 042
     Dates: start: 20060630
  5. BRONCHODILATORS [Concomitant]
     Dates: start: 20060630

REACTIONS (8)
  - ASTHMA [None]
  - BLOOD PRESSURE DECREASED [None]
  - DRUG INEFFECTIVE [None]
  - LEFT VENTRICULAR FAILURE [None]
  - OXYGEN SATURATION DECREASED [None]
  - PULMONARY OEDEMA [None]
  - STRESS CARDIOMYOPATHY [None]
  - STRIDOR [None]
